FAERS Safety Report 20246963 (Version 1)
Quarter: 2021Q4

REPORT INFORMATION
  Report Type: Spontaneous
  Country: US (occurrence: None)
  Receive Date: 20211228
  Receipt Date: 20211228
  Transmission Date: 20220303
  Serious: Yes (Hospitalization)
  Sender: FDA-Public Use
  Company Number: None

PATIENT
  Sex: Male
  Weight: 75.3 kg

DRUGS (2)
  1. CARBOPLATIN [Suspect]
     Active Substance: CARBOPLATIN
     Dates: end: 20211213
  2. TAXOL [Suspect]
     Active Substance: PACLITAXEL
     Dates: end: 20211213

REACTIONS (4)
  - Peripheral swelling [None]
  - Muscular weakness [None]
  - Intervertebral disc protrusion [None]
  - Vertebral foraminal stenosis [None]

NARRATIVE: CASE EVENT DATE: 20211214
